FAERS Safety Report 14576696 (Version 4)
Quarter: 2019Q2

REPORT INFORMATION
  Report Type: Report from Study
  Country: US (occurrence: US)
  Receive Date: 20180227
  Receipt Date: 20190425
  Transmission Date: 20190711
  Serious: Yes (Other)
  Sender: FDA-Public Use
  Company Number: PHEH2018US007865

PATIENT
  Sex: Female

DRUGS (1)
  1. COSENTYX [Suspect]
     Active Substance: SECUKINUMAB
     Indication: PSORIATIC ARTHROPATHY
     Dosage: 300 MG, QMO
     Route: 058

REACTIONS (11)
  - Mobility decreased [Unknown]
  - Lower respiratory tract infection [Unknown]
  - Balance disorder [Unknown]
  - Anaemia [Unknown]
  - Inflammation [Unknown]
  - Nasopharyngitis [Unknown]
  - Influenza [Unknown]
  - Malaise [Unknown]
  - Psoriatic arthropathy [Unknown]
  - Pain [Unknown]
  - Stress [Unknown]
